FAERS Safety Report 18041114 (Version 1)
Quarter: 2020Q3

REPORT INFORMATION
  Report Type: Report from Study
  Country: AU (occurrence: AU)
  Receive Date: 20200718
  Receipt Date: 20200718
  Transmission Date: 20201103
  Serious: Yes (Other)
  Sender: FDA-Public Use
  Company Number: NVSC2020AU065756

PATIENT
  Sex: Male

DRUGS (1)
  1. COSENTYX [Suspect]
     Active Substance: SECUKINUMAB
     Indication: PSORIASIS
     Dosage: UNK UNK, QMO
     Route: 058
     Dates: start: 20190807

REACTIONS (8)
  - Splenomegaly [Unknown]
  - Liver sarcoidosis [Unknown]
  - Pulmonary mass [Unknown]
  - Pneumonitis [Unknown]
  - Jaundice [Unknown]
  - Pulmonary sarcoidosis [Unknown]
  - Hepatomegaly [Unknown]
  - Liver function test increased [Unknown]
